FAERS Safety Report 15001619 (Version 2)
Quarter: 2018Q2

REPORT INFORMATION
  Report Type: Report from Study
  Country: JP (occurrence: JP)
  Receive Date: 20180612
  Receipt Date: 20180618
  Transmission Date: 20180711
  Serious: Yes (Hospitalization)
  Sender: FDA-Public Use
  Company Number: JP-CELGENEUS-JPN-20180601050

PATIENT
  Age: 74 Year
  Sex: Female
  Weight: 35.7 kg

DRUGS (13)
  1. REVLIMID [Suspect]
     Active Substance: LENALIDOMIDE
     Indication: PLASMA CELL MYELOMA
     Dosage: 25 MILLIGRAM
     Route: 048
     Dates: start: 20180504
  2. LENADEX [Suspect]
     Active Substance: DEXAMETHASONE ACETATE
     Indication: PLASMA CELL MYELOMA
     Dosage: 40 MILLIGRAM
     Route: 048
     Dates: start: 20180504
  3. CARBOCISTEINE [Concomitant]
     Active Substance: CARBOCYSTEINE
     Indication: BRONCHITIS CHRONIC
     Dosage: 1500 MILLIGRAM
     Route: 048
     Dates: start: 20180408
  4. DESALEX [Concomitant]
     Active Substance: DESLORATADINE
     Indication: BRONCHITIS CHRONIC
     Dosage: 5 MILLIGRAM
     Route: 048
     Dates: start: 2015
  5. CALFINA [Concomitant]
     Active Substance: ALFACALCIDOL
     Indication: OSTEOPOROSIS
     Dosage: 5 MICROGRAM
     Route: 048
     Dates: start: 2011
  6. SPIOLTO RESPIMAT [Concomitant]
     Active Substance: OLODATEROL HYDROCHLORIDE\TIOTROPIUM BROMIDE MONOHYDRATE
     Indication: BRONCHITIS CHRONIC
     Dosage: 2 INHALATION
     Route: 055
     Dates: start: 20180510
  7. MONTELUKAST SODIUM. [Concomitant]
     Active Substance: MONTELUKAST SODIUM
     Indication: BRONCHITIS CHRONIC
     Dosage: 10 MILLIGRAM
     Route: 048
     Dates: start: 2015
  8. BAYASPIRIN [Concomitant]
     Active Substance: ASPIRIN
     Indication: THROMBOSIS PROPHYLAXIS
     Dosage: 100 MILLIGRAM
     Route: 048
  9. ENALAPRIL MALEATE. [Suspect]
     Active Substance: ENALAPRIL MALEATE
     Indication: LEFT VENTRICULAR DYSFUNCTION
     Dosage: 2.5 MILLIGRAM
     Route: 048
     Dates: start: 20180407, end: 20180522
  10. AMBROXOL HYDROCHLORIDE [Concomitant]
     Active Substance: AMBROXOL HYDROCHLORIDE
     Indication: BRONCHITIS CHRONIC
     Dosage: 45 MILLIGRAM
     Route: 048
     Dates: start: 2015
  11. BISOPROLOL FUMARATE. [Concomitant]
     Active Substance: BISOPROLOL FUMARATE
     Indication: LEFT VENTRICULAR DYSFUNCTION
     Dosage: .625 MILLIGRAM
     Route: 048
     Dates: start: 20180409
  12. ERYTHROCIN [Concomitant]
     Active Substance: ERYTHROMYCIN LACTOBIONATE
     Indication: BRONCHITIS CHRONIC
     Dosage: 200 MILLIGRAM
     Route: 048
     Dates: start: 20180510
  13. CALONAL [Concomitant]
     Active Substance: ACETAMINOPHEN
     Indication: BACK PAIN
     Dosage: 800 MILLIGRAM
     Route: 048

REACTIONS (2)
  - Asthma [Recovering/Resolving]
  - Bronchitis [Recovering/Resolving]

NARRATIVE: CASE EVENT DATE: 20180510
